FAERS Safety Report 7605885-3 (Version None)
Quarter: 2011Q3

REPORT INFORMATION
  Report Type: 
  Country: None (occurrence: None)
  Receive Date: 20110713
  Receipt Date: 20110707
  Transmission Date: 20111222
  Serious: Yes (Hospitalization)
  Sender: FDA-Public Use
  Company Number: US-SANOFI-AVENTIS-2011SA043500

PATIENT
  Age: 2 Year

DRUGS (1)
  1. LOVENOX [Suspect]
     Route: 065
     Dates: start: 20100101

REACTIONS (2)
  - RIB FRACTURE [None]
  - OFF LABEL USE [None]
